FAERS Safety Report 18926441 (Version 9)
Quarter: 2021Q2

REPORT INFORMATION
  Report Type: Spontaneous
  Country: PL (occurrence: PL)
  Receive Date: 20210223
  Receipt Date: 20210517
  Transmission Date: 20210717
  Serious: Yes (Hospitalization, Other)
  Sender: FDA-Public Use
  Company Number: PL-AUROBINDO-AUR-APL-2021-007220

PATIENT
  Age: 28 Year
  Sex: Male

DRUGS (11)
  1. OLANZAPINE. [Suspect]
     Active Substance: OLANZAPINE
     Indication: MENTAL IMPAIRMENT
     Dosage: 10 MILLIGRAM, ONCE A DAY
     Route: 065
     Dates: start: 2008, end: 201612
  2. OLANZAPINE. [Suspect]
     Active Substance: OLANZAPINE
     Indication: SCHIZOPHRENIA
     Dosage: 10 MILLIGRAM, DAILY
     Route: 065
     Dates: start: 20170327, end: 20170423
  3. ZIPRASIDONE. [Suspect]
     Active Substance: ZIPRASIDONE
     Indication: SCHIZOPHRENIA
     Dosage: 160 MILLIGRAM, ONCE A DAY
     Route: 065
     Dates: start: 20170515, end: 20170629
  4. QUINAGOLIDE [Suspect]
     Active Substance: QUINAGOLIDE
     Dosage: 50 MILLIGRAM, EVERY OTHER DAY
     Route: 065
  5. ARIPIPRAZOLE  TABLETS [Suspect]
     Active Substance: ARIPIPRAZOLE
     Indication: PITUITARY TUMOUR BENIGN
     Dosage: UNK
     Route: 065
  6. QUINAGOLIDE [Suspect]
     Active Substance: QUINAGOLIDE
     Indication: PRODUCT USED FOR UNKNOWN INDICATION
     Dosage: 75 MILLIGRAM, ONCE A DAY
     Route: 065
  7. CLOZAPINE. [Concomitant]
     Active Substance: CLOZAPINE
     Indication: PRODUCT USED FOR UNKNOWN INDICATION
     Dosage: 50 MILLIGRAM, ONCE A DAY
     Route: 065
     Dates: start: 201806
  8. ARIPIPRAZOLE. [Suspect]
     Active Substance: ARIPIPRAZOLE
     Indication: PITUITARY TUMOUR BENIGN
  9. MIRTAZAPINE. [Suspect]
     Active Substance: MIRTAZAPINE
     Indication: SCHIZOPHRENIA
     Dosage: 15 MILLIGRAM, ONCE A DAY
     Route: 065
     Dates: start: 20170602
  10. ARIPIPRAZOLE. [Suspect]
     Active Substance: ARIPIPRAZOLE
     Indication: SCHIZOPHRENIA
     Dosage: 30 MILLIGRAM, ONCE A DAY
     Route: 048
     Dates: start: 20170420, end: 20170608
  11. ARIPIPRAZOLE. [Suspect]
     Active Substance: ARIPIPRAZOLE
     Indication: MENTAL IMPAIRMENT

REACTIONS (13)
  - Psychotic disorder [Unknown]
  - Mental status changes [Unknown]
  - Product use in unapproved indication [Unknown]
  - Drug ineffective [Recovered/Resolved]
  - Blood prolactin increased [Recovered/Resolved]
  - Mental impairment [Recovered/Resolved]
  - Hyperprolactinaemia [Recovering/Resolving]
  - Tension [Unknown]
  - Pituitary tumour benign [Recovering/Resolving]
  - Prolactin-producing pituitary tumour [Not Recovered/Not Resolved]
  - Mental disorder [Recovering/Resolving]
  - Initial insomnia [Unknown]
  - Therapeutic product effect incomplete [Unknown]

NARRATIVE: CASE EVENT DATE: 20170413
